FAERS Safety Report 15145269 (Version 3)
Quarter: 2020Q3

REPORT INFORMATION
  Report Type: Spontaneous
  Country: US (occurrence: US)
  Receive Date: 20180713
  Receipt Date: 20200929
  Transmission Date: 20201102
  Serious: No
  Sender: FDA-Public Use
  Company Number: US-INTERCEPT-PMOCA2018000365

PATIENT
  Sex: Female
  Weight: 90.7 kg

DRUGS (6)
  1. OCALIVA [Suspect]
     Active Substance: OBETICHOLIC ACID
     Indication: PRIMARY BILIARY CHOLANGITIS
     Dosage: 5 MG, QD
     Route: 048
     Dates: start: 2017
  2. BIOTIN [Concomitant]
     Active Substance: BIOTIN
  3. CALCIUM [Concomitant]
     Active Substance: CALCIUM
  4. MELATONIN [Concomitant]
     Active Substance: MELATONIN
  5. VITAMIN D3 [Concomitant]
     Active Substance: CHOLECALCIFEROL
     Indication: PRODUCT USED FOR UNKNOWN INDICATION
  6. URSODEOXYCHOLIC ACID [Concomitant]
     Active Substance: URSODIOL
     Dosage: UNK

REACTIONS (13)
  - Pruritus [Recovered/Resolved]
  - Oropharyngeal pain [Not Recovered/Not Resolved]
  - Weight increased [Unknown]
  - Headache [Recovered/Resolved]
  - Amnesia [Not Recovered/Not Resolved]
  - Diarrhoea [Not Recovered/Not Resolved]
  - Arthralgia [Unknown]
  - Product dose omission in error [Recovered/Resolved]
  - Polyp [Unknown]
  - Abdominal pain [Unknown]
  - Therapy interrupted [Recovered/Resolved]
  - Confusional state [Not Recovered/Not Resolved]
  - Fatigue [Not Recovered/Not Resolved]

NARRATIVE: CASE EVENT DATE: 2017
